FAERS Safety Report 17884862 (Version 1)
Quarter: 2020Q2

REPORT INFORMATION
  Report Type: Spontaneous
  Country: US (occurrence: US)
  Receive Date: 20200611
  Receipt Date: 20200611
  Transmission Date: 20200714
  Serious: No
  Sender: FDA-Public Use
  Company Number: None

PATIENT
  Age: 69 Year
  Sex: Female
  Weight: 81.45 kg

DRUGS (14)
  1. HYDROCODONE [Concomitant]
     Active Substance: HYDROCODONE
  2. LIDOCAINE. [Concomitant]
     Active Substance: LIDOCAINE
  3. BETACAROTINE [Concomitant]
  4. CALCIUM [Concomitant]
     Active Substance: CALCIUM
  5. VITAMIN C [Concomitant]
     Active Substance: ASCORBIC ACID
  6. DRONABINOL. [Concomitant]
     Active Substance: DRONABINOL
  7. CENTRUM WOMENS [Concomitant]
  8. IRON [Concomitant]
     Active Substance: IRON
  9. COQ10 [Concomitant]
     Active Substance: UBIDECARENONE
  10. TYLENOL [Concomitant]
     Active Substance: ACETAMINOPHEN
  11. ZOFRAN [Concomitant]
     Active Substance: ONDANSETRON HYDROCHLORIDE
  12. VIT B [Concomitant]
     Active Substance: VITAMIN B
  13. ETOPOSIDE. [Suspect]
     Active Substance: ETOPOSIDE
     Indication: PERITONEAL NEOPLASM
     Route: 048
     Dates: start: 20200505, end: 20200611
  14. LINZESS [Concomitant]
     Active Substance: LINACLOTIDE

REACTIONS (1)
  - Hospice care [None]

NARRATIVE: CASE EVENT DATE: 20200611
